FAERS Safety Report 5636089-1 (Version None)
Quarter: 2008Q1

REPORT INFORMATION
  Report Type: 
  Country: None (occurrence: None)
  Receive Date: 20080225
  Receipt Date: 20080215
  Transmission Date: 20080703
  Serious: Yes (Hospitalization)
  Sender: FDA-Public Use
  Company Number: PL-JNJFOC-20060901492

PATIENT
  Sex: Female
  Weight: 62.5 kg

DRUGS (8)
  1. ET743 [Suspect]
     Dosage: 1.1MG/M^2
     Route: 042
  2. ET743 [Suspect]
     Indication: OVARIAN CANCER
     Route: 042
  3. DOXIL [Suspect]
     Dosage: 30MG/M^2
     Route: 042
  4. DOXIL [Suspect]
     Indication: OVARIAN CANCER
     Route: 042
  5. ONDANSETRON [Concomitant]
     Route: 042
  6. ONDANSETRON [Concomitant]
     Indication: PROPHYLAXIS
     Route: 042
  7. TAXOL [Concomitant]
     Route: 065
  8. CISPLATIN [Concomitant]
     Route: 065

REACTIONS (3)
  - ALANINE AMINOTRANSFERASE INCREASED [None]
  - ASPARTATE AMINOTRANSFERASE INCREASED [None]
  - BLOOD ALKALINE PHOSPHATASE INCREASED [None]
